FAERS Safety Report 8430736 (Version 4)
Quarter: 2014Q1

REPORT INFORMATION
  Report Type: Spontaneous
  Country: JP (occurrence: None)
  Receive Date: 20120215
  Receipt Date: 20140312
  Transmission Date: 20141002
  Serious: Yes (Death, Other)
  Sender: FDA-Public Use
  Company Number: ADR-2012-00319

PATIENT
  Age: 79 Year
  Sex: Male

DRUGS (1)
  1. GABALON INTRATHECAL [Suspect]
     Indication: SPASTIC PARALYSIS

REACTIONS (8)
  - Pneumonia aspiration [None]
  - Somnolence [None]
  - Muscle spasticity [None]
  - Respiratory failure [None]
  - Dysphagia [None]
  - Condition aggravated [None]
  - Disease complication [None]
  - Activities of daily living impaired [None]
